FAERS Safety Report 7711617-0 (Version None)
Quarter: 2011Q3

REPORT INFORMATION
  Report Type: 
  Country: None (occurrence: None)
  Receive Date: 20110826
  Receipt Date: 20110621
  Transmission Date: 20111222
  Serious: No
  Sender: FDA-Public Use
  Company Number: US-BRISTOL-MYERS SQUIBB COMPANY-15784754

PATIENT
  Age: 67 Year
  Sex: Male

DRUGS (6)
  1. CRESTOR [Concomitant]
  2. DOXYCYCLINE [Concomitant]
  3. ONGLYZA [Suspect]
     Indication: TYPE 2 DIABETES MELLITUS
     Dosage: DURATION:6 WEEKS
     Route: 048
     Dates: start: 20110324
  4. METFORMIN HCL [Concomitant]
  5. LISINOPRIL [Concomitant]
  6. ATENOLOL [Concomitant]

REACTIONS (2)
  - THERAPEUTIC RESPONSE DECREASED [None]
  - MEDICATION ERROR [None]
